FAERS Safety Report 7417631-7 (Version None)
Quarter: 2011Q2

REPORT INFORMATION
  Report Type: 
  Country: None (occurrence: None)
  Receive Date: 20110415
  Receipt Date: 20110411
  Transmission Date: 20111010
  Serious: Yes (Death)
  Sender: FDA-Public Use
  Company Number: KR-GENZYME-FLUD-1001055

PATIENT

DRUGS (13)
  1. BUSULFAN [Suspect]
     Indication: STEM CELL TRANSPLANT
  2. METHOTREXATE [Concomitant]
     Dosage: 10 MG/M2, QD ON DAYS +3, +6, +11
     Route: 065
  3. CIPROFLOXACIN [Concomitant]
     Indication: INFECTION PROPHYLAXIS
     Dosage: 500 MG, BID
     Route: 048
  4. FLUDARA [Suspect]
     Indication: MYELODYSPLASTIC SYNDROME
     Dosage: 40 MG/M2, QD X 4 DAYS OVER 30 MINUTES ON DAY -6 TO -3
     Route: 042
  5. CYCLOSPORINE [Concomitant]
     Indication: PROPHYLAXIS AGAINST GRAFT VERSUS HOST DISEASE
     Dosage: 1.5 MG/KG, Q12HR OVER 3 HOURS ON DAYS -1 TO + 14
     Route: 042
  6. HEPARIN [Concomitant]
     Indication: PROPHYLAXIS
     Dosage: 100 U/KG, QD CONTINUOUS INFUSION
     Route: 041
  7. FLUCONAZOLE [Concomitant]
     Indication: INFECTION PROPHYLAXIS
     Dosage: 100 MG, QD
     Route: 048
  8. BUSULFAN [Suspect]
     Indication: MYELODYSPLASTIC SYNDROME
     Dosage: 130 MG/M2, QD X 4 DAYS OVER 3 HOURS ON DAYS -6 TO -3
     Route: 042
  9. SULFAMETHOXAZOLE W [Concomitant]
     Indication: INFECTION PROPHYLAXIS
     Dosage: 960 MG, 3X/W
     Route: 048
  10. METHOTREXATE [Concomitant]
     Indication: PROPHYLAXIS AGAINST GRAFT VERSUS HOST DISEASE
     Dosage: 15 MG/M2, QD ON DAY +1
     Route: 065
  11. FLUDARA [Suspect]
     Indication: STEM CELL TRANSPLANT
  12. CYCLOSPORINE [Concomitant]
     Dosage: 4-6 MG/KG BID ADJUSTED AFTER THERAPEUTIC DRUG MONITORING AT A LEVEL OF 200-400 NG/ML
     Route: 048
  13. URSODIOL [Concomitant]
     Indication: PROPHYLAXIS
     Dosage: 100 MG, TID
     Route: 048

REACTIONS (1)
  - PNEUMONIA CYTOMEGALOVIRAL [None]
